FAERS Safety Report 5889918-0 (Version None)
Quarter: 2008Q3

REPORT INFORMATION
  Report Type: 
  Country: None (occurrence: None)
  Receive Date: 20080919
  Receipt Date: 20080915
  Transmission Date: 20090109
  Serious: Yes (Other)
  Sender: FDA-Public Use
  Company Number: PHEH2008US05639

PATIENT
  Sex: Female
  Weight: 54.875 kg

DRUGS (3)
  1. VIVELLE-DOT [Suspect]
     Indication: HORMONE REPLACEMENT THERAPY
     Dosage: 0.0375MG
     Route: 062
     Dates: start: 20070405, end: 20070507
  2. PROGESTERONE [Suspect]
     Indication: HORMONE REPLACEMENT THERAPY
     Dosage: UNK
  3. PROMETRIUM [Suspect]

REACTIONS (5)
  - CARDIAC DISORDER [None]
  - DIZZINESS [None]
  - MALAISE [None]
  - TRANSIENT ISCHAEMIC ATTACK [None]
  - VITAMIN B12 DECREASED [None]
